FAERS Safety Report 13189192 (Version 1)
Quarter: 2017Q1

REPORT INFORMATION
  Report Type: Report from Study
  Country: US (occurrence: US)
  Receive Date: 20170206
  Receipt Date: 20170206
  Transmission Date: 20170428
  Serious: Yes (Death, Hospitalization, Other)
  Sender: FDA-Public Use
  Company Number: US-BRISTOL-MYERS SQUIBB COMPANY-BMS-2017-002101

PATIENT
  Age: 55 Year
  Sex: Female
  Weight: 76.2 kg

DRUGS (1)
  1. NIVOLUMAB [Suspect]
     Active Substance: NIVOLUMAB
     Indication: HEPATIC CANCER
     Dosage: 240 MG, Q2WK
     Route: 042
     Dates: start: 20161117, end: 20161213

REACTIONS (2)
  - Death [Fatal]
  - Hyperbilirubinaemia [Unknown]

NARRATIVE: CASE EVENT DATE: 20170110
